FAERS Safety Report 13026265 (Version 3)
Quarter: 2017Q4

REPORT INFORMATION
  Report Type: Spontaneous
  Country: US (occurrence: US)
  Receive Date: 20161214
  Receipt Date: 20171221
  Transmission Date: 20180320
  Serious: Yes (Life-Threatening, Hospitalization, Other)
  Sender: FDA-Public Use
  Company Number: US-JNJFOC-20161208902

PATIENT
  Age: 46 Year
  Sex: Male

DRUGS (2)
  1. LOPERAMIDE [Suspect]
     Active Substance: LOPERAMIDE
     Route: 065
  2. LOPERAMIDE [Suspect]
     Active Substance: LOPERAMIDE
     Indication: DIARRHOEA
     Route: 065

REACTIONS (15)
  - Torsade de pointes [Recovered/Resolved]
  - Blood magnesium decreased [Unknown]
  - Dizziness [Unknown]
  - Confusional state [Unknown]
  - Pulse absent [Unknown]
  - Alanine aminotransferase increased [Unknown]
  - Arrhythmia [Recovered/Resolved]
  - Urinary incontinence [Unknown]
  - Intentional overdose [Unknown]
  - Unresponsive to stimuli [Recovered/Resolved]
  - Loss of consciousness [Unknown]
  - Hypokalaemia [Unknown]
  - Tongue biting [Unknown]
  - Aspartate aminotransferase increased [Unknown]
  - Generalised tonic-clonic seizure [Unknown]
